FAERS Safety Report 16069600 (Version 3)
Quarter: 2019Q1

REPORT INFORMATION
  Report Type: Spontaneous
  Country: US (occurrence: US)
  Receive Date: 20190314
  Receipt Date: 20190328
  Transmission Date: 20190418
  Serious: Yes (Other)
  Sender: FDA-Public Use
  Company Number: US-AMGEN INC.-USASP2019037432

PATIENT
  Age: 34 Year
  Sex: Female
  Weight: 101.2 kg

DRUGS (2)
  1. AIMOVIG [Suspect]
     Active Substance: ERENUMAB-AOOE
     Indication: MIGRAINE WITH AURA
     Dosage: 140 MILLIGRAM, QMO
     Route: 058
     Dates: start: 20180909
  2. NAPROXEN. [Concomitant]
     Active Substance: NAPROXEN
     Indication: CONSTIPATION
     Dosage: UNK UNK, AS NECESSARY (MAX 10 DAYS MONTH, SINGULAR DAY)

REACTIONS (5)
  - Gastrointestinal motility disorder [Unknown]
  - Dyschezia [Unknown]
  - Constipation [Recovered/Resolved]
  - Rectal haemorrhage [Unknown]
  - Occult blood positive [Unknown]

NARRATIVE: CASE EVENT DATE: 20181201
